FAERS Safety Report 11307312 (Version 1)
Quarter: 2015Q3

REPORT INFORMATION
  Report Type: Spontaneous
  Country: US (occurrence: US)
  Receive Date: 20150723
  Receipt Date: 20150723
  Transmission Date: 20151125
  Serious: No
  Sender: FDA-Public Use
  Company Number: US-BAUSCH-SP08795

PATIENT
  Sex: Male

DRUGS (4)
  1. XIFAXAN [Suspect]
     Active Substance: RIFAXIMIN
     Indication: ABDOMINAL DISTENSION
  2. XIFAXAN [Suspect]
     Active Substance: RIFAXIMIN
     Indication: BACTERIAL INFECTION
  3. XIFAXAN [Suspect]
     Active Substance: RIFAXIMIN
     Indication: FLATULENCE
     Route: 048
     Dates: start: 20141230
  4. XIFAXAN [Suspect]
     Active Substance: RIFAXIMIN
     Indication: NAUSEA

REACTIONS (1)
  - Headache [Not Recovered/Not Resolved]

NARRATIVE: CASE EVENT DATE: 20141231
